FAERS Safety Report 13755046 (Version 3)
Quarter: 2018Q2

REPORT INFORMATION
  Report Type: Report from Study
  Country: None (occurrence: US)
  Receive Date: 20170714
  Receipt Date: 20180403
  Transmission Date: 20180711
  Serious: Yes (Other)
  Sender: FDA-Public Use
  Company Number: US-ABBVIE-16K-163-1581753-00

PATIENT
  Sex: Male
  Weight: 129.39 kg

DRUGS (4)
  1. HUMIRA [Suspect]
     Active Substance: ADALIMUMAB
     Indication: ANKYLOSING SPONDYLITIS
     Route: 058
     Dates: start: 201312, end: 201511
  2. HUMIRA [Suspect]
     Active Substance: ADALIMUMAB
     Route: 058
  3. HUMIRA [Suspect]
     Active Substance: ADALIMUMAB
     Route: 058
  4. HUMIRA [Suspect]
     Active Substance: ADALIMUMAB
     Route: 058
     Dates: start: 201512

REACTIONS (23)
  - Fatigue [Recovered/Resolved]
  - Nasopharyngitis [Recovered/Resolved]
  - Dizziness [Unknown]
  - Bronchitis [Recovered/Resolved]
  - Endodontic procedure [Recovering/Resolving]
  - Bronchitis [Recovering/Resolving]
  - Lethargy [Unknown]
  - Sinusitis [Recovered/Resolved]
  - Hypertension [Unknown]
  - Prolactin-producing pituitary tumour [Not Recovered/Not Resolved]
  - Paranoia [Recovered/Resolved]
  - Malaise [Unknown]
  - Tinnitus [Unknown]
  - Weight increased [Recovered/Resolved]
  - Blood testosterone decreased [Recovered/Resolved]
  - Ocular hyperaemia [Unknown]
  - Neck pain [Unknown]
  - Dehydration [Unknown]
  - Fear [Recovered/Resolved]
  - Sinus disorder [Unknown]
  - Nasopharyngitis [Recovered/Resolved]
  - Drug effect incomplete [Unknown]
  - Ankylosing spondylitis [Unknown]

NARRATIVE: CASE EVENT DATE: 2015
